FAERS Safety Report 25770160 (Version 1)
Quarter: 2025Q3

REPORT INFORMATION
  Report Type: Report from Study
  Country: US (occurrence: US)
  Receive Date: 20250907
  Receipt Date: 20250907
  Transmission Date: 20251021
  Serious: Yes (Hospitalization)
  Sender: ALEXION PHARMACEUTICALS
  Company Number: US-AstraZeneca-CH-00943651A

PATIENT
  Sex: Male

DRUGS (2)
  1. ACALABRUTINIB [Suspect]
     Active Substance: ACALABRUTINIB
     Indication: Chronic lymphocytic leukaemia
     Dosage: 100 MILLIGRAM, BID
  2. MIDODRINE [Concomitant]
     Active Substance: MIDODRINE
     Route: 065

REACTIONS (4)
  - Fall [Unknown]
  - Craniofacial fracture [Unknown]
  - Cerebral haemorrhage [Unknown]
  - Blood pressure abnormal [Unknown]
